FAERS Safety Report 16772921 (Version 1)
Quarter: 2019Q3

REPORT INFORMATION
  Report Type: Spontaneous
  Country: IN (occurrence: IN)
  Receive Date: 20190904
  Receipt Date: 20190904
  Transmission Date: 20191005
  Serious: Yes (Death, Other)
  Sender: FDA-Public Use
  Company Number: IN-FRESENIUS KABI-FK201909692

PATIENT
  Age: 64 Year
  Sex: Male

DRUGS (5)
  1. ONDANSETRON HYDROCHLORIDE. [Concomitant]
     Active Substance: ONDANSETRON HYDROCHLORIDE
     Indication: PROPHYLAXIS OF NAUSEA AND VOMITING
  2. VINORELBINE [Suspect]
     Active Substance: VINORELBINE TARTRATE
     Indication: HODGKIN^S DISEASE REFRACTORY
     Dosage: ON DAYS 1AND 8
     Route: 040
  3. PALONOSETRON. [Concomitant]
     Active Substance: PALONOSETRON HYDROCHLORIDE
     Indication: PROPHYLAXIS OF NAUSEA AND VOMITING
  4. DEXAMETHASONE. [Suspect]
     Active Substance: DEXAMETHASONE
     Indication: HODGKIN^S DISEASE REFRACTORY
     Dosage: ON DAYS 1 TO 4
     Route: 048
  5. GEMCITABINE. [Suspect]
     Active Substance: GEMCITABINE
     Indication: HODGKIN^S DISEASE REFRACTORY
     Dosage: OVER 30 MINUTES ON DAYS 1 AND 8
     Route: 042

REACTIONS (2)
  - Neutropenic sepsis [Fatal]
  - Pneumonia [Fatal]
